FAERS Safety Report 6910620-8 (Version None)
Quarter: 2010Q3

REPORT INFORMATION
  Report Type: 
  Country: None (occurrence: None)
  Receive Date: 20100806
  Receipt Date: 20100728
  Transmission Date: 20110219
  Serious: Yes (Hospitalization, Congenital Anomaly)
  Sender: FDA-Public Use
  Company Number: FR-SANOFI-AVENTIS-2010SA044790

PATIENT
  Age: 23 Year
  Sex: Female

DRUGS (3)
  1. LOVENOX [Suspect]
     Route: 058
  2. PREVISCAN [Suspect]
     Route: 048
  3. SOTALEX [Suspect]
     Route: 065

REACTIONS (2)
  - CONGENITAL ANOMALY [None]
  - DRUG EXPOSURE DURING PREGNANCY [None]
